FAERS Safety Report 21359343 (Version 1)
Quarter: 2022Q3

REPORT INFORMATION
  Report Type: Spontaneous
  Country: US (occurrence: None)
  Receive Date: 20220920
  Receipt Date: 20220920
  Transmission Date: 20221027
  Serious: Yes (Hospitalization)
  Sender: FDA-Public Use
  Company Number: None

PATIENT
  Age: 44 Year
  Sex: Male
  Weight: 78.6 kg

DRUGS (5)
  1. VENETOCLAX [Suspect]
     Active Substance: VENETOCLAX
     Indication: Leukaemia
     Dates: start: 20220830
  2. Meropenem, 1g, q8h [Concomitant]
  3. vancomycin D5W 100mg once [Concomitant]
     Dates: end: 20220917
  4. Vancomycin HCL in Dextrose 5% 900mg once [Concomitant]
     Dates: end: 20220918
  5. Vancomycin HCL in Sodium Chloride, IV every 8 hrs.,1300mg [Concomitant]

REACTIONS (9)
  - Sepsis [None]
  - Infusion related reaction [None]
  - Chills [None]
  - Dizziness [None]
  - Pain in extremity [None]
  - Oral pain [None]
  - Blood culture positive [None]
  - Pleural effusion [None]
  - Polymyositis [None]

NARRATIVE: CASE EVENT DATE: 20220916
